FAERS Safety Report 7103232-7 (Version None)
Quarter: 2010Q4

REPORT INFORMATION
  Report Type: 
  Country: None (occurrence: None)
  Receive Date: 20101115
  Receipt Date: 20101105
  Transmission Date: 20110411
  Serious: Yes (Other)
  Sender: FDA-Public Use
  Company Number: BR-GENENTECH-303794

PATIENT
  Sex: Female
  Weight: 70.5 kg

DRUGS (7)
  1. RITUXIMAB [Suspect]
     Indication: RHEUMATOID ARTHRITIS
     Dosage: 1000 MG/ML, Q15D
     Route: 042
     Dates: start: 20070901, end: 20070901
  2. RITUXIMAB [Suspect]
     Dosage: 1000 MG/ML, Q15D
     Route: 042
     Dates: start: 20080301, end: 20080301
  3. RITUXIMAB [Suspect]
     Dosage: 1000 MG/ML, Q15D
     Route: 042
     Dates: start: 20100128, end: 20100211
  4. ARAVA [Suspect]
     Indication: PRODUCT USED FOR UNKNOWN INDICATION
     Dosage: 20 MG, UNK
     Route: 065
  5. ARADOIS [Concomitant]
     Indication: PRODUCT USED FOR UNKNOWN INDICATION
     Dosage: 50 MG, UNK
  6. PURAN T4 [Concomitant]
     Indication: PRODUCT USED FOR UNKNOWN INDICATION
     Dosage: 125 A?G, UNK
  7. TIORFAN [Concomitant]
     Indication: PRODUCT USED FOR UNKNOWN INDICATION
     Dosage: UNK

REACTIONS (11)
  - ALOPECIA [None]
  - ARTHRALGIA [None]
  - BONE DISORDER [None]
  - FALL [None]
  - HEADACHE [None]
  - HYPOAESTHESIA [None]
  - JOINT RANGE OF MOTION DECREASED [None]
  - JOINT SWELLING [None]
  - PAIN [None]
  - SPINAL DISORDER [None]
  - WEIGHT INCREASED [None]
